FAERS Safety Report 5560669-5 (Version None)
Quarter: 2007Q4

REPORT INFORMATION
  Report Type: 
  Country: None (occurrence: None)
  Receive Date: 20071215
  Receipt Date: 20071126
  Transmission Date: 20080405
  Serious: No
  Sender: FDA-Public Use
  Company Number: US-ABBOTT-07P-163-0426226-00

PATIENT
  Sex: Female
  Weight: 68.1 kg

DRUGS (12)
  1. HUMIRA [Suspect]
     Indication: RHEUMATOID ARTHRITIS
     Route: 058
     Dates: start: 20070913
  2. TIMOLOL MALEATE [Concomitant]
     Indication: GLAUCOMA
     Route: 047
  3. LOSARTAN POTASSIUM [Concomitant]
     Indication: BLOOD PRESSURE
  4. ATORVASTATIN CALCIUM [Concomitant]
     Indication: BLOOD CHOLESTEROL
  5. LEVOTHYROXINE SODIUM [Concomitant]
     Indication: DRUG USE FOR UNKNOWN INDICATION
  6. GLIPIZIDE [Concomitant]
     Indication: DIABETES MELLITUS
  7. FOLINIC ACID [Concomitant]
     Indication: ARTHRITIS
  8. METHOTREXATE [Concomitant]
     Indication: ARTHRITIS
  9. ASPIRIN [Concomitant]
     Indication: DRUG USE FOR UNKNOWN INDICATION
  10. VITAMINS [Concomitant]
     Indication: DRUG USE FOR UNKNOWN INDICATION
  11. ERGOCALCIFEROL [Concomitant]
     Indication: OSTEOPOROSIS
  12. TAMOXIFEN CITRATE [Concomitant]
     Indication: BREAST CANCER

REACTIONS (2)
  - ACCIDENTAL EXPOSURE [None]
  - INJECTION SITE BRUISING [None]
